FAERS Safety Report 7272282-2 (Version None)
Quarter: 2011Q1

REPORT INFORMATION
  Report Type: 
  Country: None (occurrence: None)
  Receive Date: 20110131
  Receipt Date: 20110131
  Transmission Date: 20110831
  Serious: Yes (Hospitalization)
  Sender: FDA-Public Use
  Company Number: None

PATIENT
  Sex: Female
  Weight: 129.7287 kg

DRUGS (1)
  1. DEXFERRUM [Suspect]
     Indication: ANAEMIA
     Dosage: 1000MG ONCE IV DRIP
     Route: 041
     Dates: start: 20110118, end: 20110118

REACTIONS (7)
  - RESTLESS LEGS SYNDROME [None]
  - INFUSION RELATED REACTION [None]
  - ABDOMINAL PAIN [None]
  - DIZZINESS [None]
  - BLOOD CORTISOL [None]
  - HEADACHE [None]
  - CHEST PAIN [None]
